FAERS Safety Report 5313565-2 (Version None)
Quarter: 2007Q2

REPORT INFORMATION
  Report Type: 
  Country: None (occurrence: None)
  Receive Date: 20070501
  Receipt Date: 20061121
  Transmission Date: 20071010
  Serious: No
  Sender: FDA-Public Use
  Company Number: 2006UW25824

PATIENT
  Sex: Female

DRUGS (4)
  1. ENTOCORT EC [Suspect]
     Indication: CROHN'S DISEASE
     Route: 048
  2. ENTOCORT EC [Suspect]
     Route: 048
  3. ENTOCORT EC [Suspect]
     Route: 048
  4. QUESTRAN [Concomitant]

REACTIONS (3)
  - COUGH [None]
  - HEADACHE [None]
  - INFLUENZA [None]
